FAERS Safety Report 7781616-1 (Version None)
Quarter: 2011Q3

REPORT INFORMATION
  Report Type: 
  Country: None (occurrence: None)
  Receive Date: 20110927
  Receipt Date: 20110524
  Transmission Date: 20111222
  Serious: No
  Sender: FDA-Public Use
  Company Number: US-BAYER-2011-045796

PATIENT
  Age: 83 Year
  Sex: Female
  Weight: 78 kg

DRUGS (11)
  1. ALEVE (CAPLET) [Suspect]
     Indication: BACK PAIN
     Dosage: 1 TABLET ONCE DAILY - 100 COUNT
     Route: 048
  2. VITAMIN E [Concomitant]
  3. FISH OIL [Concomitant]
  4. VITAMIN D [Concomitant]
  5. SYNTHROID [Concomitant]
  6. DIOVAN [Concomitant]
  7. VESICARE [Concomitant]
  8. CALCIUM CARBONATE [Concomitant]
  9. LIPITOR [Concomitant]
  10. VITAMIN B COMPLEX CAP [Concomitant]
  11. ASCORBIC ACID [Concomitant]

REACTIONS (1)
  - CONTUSION [None]
